FAERS Safety Report 25648275 (Version 1)
Quarter: 2025Q3

REPORT INFORMATION
  Report Type: Spontaneous
  Country: US (occurrence: US)
  Receive Date: 20250806
  Receipt Date: 20250806
  Transmission Date: 20251021
  Serious: No
  Sender: ELI LILLY AND COMPANY
  Company Number: US-ELI_LILLY_AND_COMPANY-US202508000421

PATIENT
  Age: 34 Year
  Sex: Female

DRUGS (1)
  1. REYVOW [Suspect]
     Active Substance: LASMIDITAN
     Indication: Migraine
     Route: 048
     Dates: start: 202504

REACTIONS (1)
  - Migraine [Unknown]
